FAERS Safety Report 9555722 (Version 4)
Quarter: 2014Q1

REPORT INFORMATION
  Report Type: Spontaneous
  Country: GB (occurrence: GB)
  Receive Date: 20130926
  Receipt Date: 20140127
  Transmission Date: 20141002
  Serious: Yes (Life-Threatening, Other)
  Sender: FDA-Public Use
  Company Number: PHFR2013GB005440

PATIENT
  Age: 18 Year
  Sex: Male
  Weight: 120 kg

DRUGS (2)
  1. CLOZARIL [Suspect]
     Indication: SCHIZOPHRENIA
     Dosage: BID
     Route: 048
     Dates: start: 20130909
  2. CLOZARIL [Suspect]
     Indication: PSYCHOTIC DISORDER
     Dosage: 25 MG, BID
     Route: 048
     Dates: end: 20130921

REACTIONS (2)
  - Tachycardia [Recovered/Resolved]
  - Chest pain [Recovered/Resolved]
